FAERS Safety Report 7209320-9 (Version None)
Quarter: 2011Q1

REPORT INFORMATION
  Report Type: 
  Country: None (occurrence: None)
  Receive Date: 20110104
  Receipt Date: 20101231
  Transmission Date: 20110831
  Serious: Yes (Death)
  Sender: FDA-Public Use
  Company Number: US-ASTRAZENECA-2011SE00041

PATIENT
  Age: 72 Year
  Sex: Female

DRUGS (1)
  1. QUETIAPINE [Suspect]
     Dosage: 180 TABLETS OF 200 MG
     Route: 048

REACTIONS (10)
  - COMPLETED SUICIDE [None]
  - UNRESPONSIVE TO STIMULI [None]
  - TACHYCARDIA [None]
  - HYPOTENSION [None]
  - GRAND MAL CONVULSION [None]
  - PULSELESS ELECTRICAL ACTIVITY [None]
  - CORONARY ARTERY OCCLUSION [None]
  - ACIDOSIS [None]
  - TOXICITY TO VARIOUS AGENTS [None]
  - ATRIOVENTRICULAR BLOCK [None]
